FAERS Safety Report 16638915 (Version 1)
Quarter: 2019Q3

REPORT INFORMATION
  Report Type: Spontaneous
  Country: JP (occurrence: JP)
  Receive Date: 20190726
  Receipt Date: 20190726
  Transmission Date: 20191004
  Serious: Yes (Hospitalization)
  Sender: FDA-Public Use
  Company Number: JP-JNJFOC-20190736703

PATIENT
  Age: 61 Year
  Sex: Female

DRUGS (17)
  1. APIDRA [Concomitant]
     Active Substance: INSULIN GLULISINE
     Dosage: 8 INTERNATIONAL UNIT, TID
     Route: 051
     Dates: start: 20180308, end: 20181005
  2. CANAGLIFLOZIN [Suspect]
     Active Substance: CANAGLIFLOZIN
     Indication: TYPE 2 DIABETES MELLITUS
     Dosage: 100 MILLIGRAM, QD
     Route: 048
     Dates: start: 20160721
  3. APIDRA [Concomitant]
     Active Substance: INSULIN GLULISINE
     Dosage: 4 INTERNATIONAL UNIT, TID
     Route: 051
     Dates: start: 20160909, end: 20170914
  4. TACROLIMUS MONOHYDRATE [Concomitant]
     Active Substance: TACROLIMUS
     Indication: PRODUCT USED FOR UNKNOWN INDICATION
     Dosage: 2 MILLIGRAM, QD
     Route: 048
  5. MARZULENE S [Concomitant]
     Active Substance: GLUTAMINE\SODIUM GUALENATE
     Indication: PRODUCT USED FOR UNKNOWN INDICATION
     Dosage: 0.585 GRAM, TID
     Route: 048
  6. APIDRA [Concomitant]
     Active Substance: INSULIN GLULISINE
     Dosage: 12 INTERNATIONAL UNIT, QD
     Route: 051
     Dates: start: 20181006, end: 20181108
  7. LANTUS XR [Concomitant]
     Active Substance: INSULIN GLARGINE
     Dosage: 4 INTERNATIONAL UNIT, QD
     Route: 051
     Dates: start: 20181006
  8. LANTUS XR [Concomitant]
     Active Substance: INSULIN GLARGINE
     Dosage: 3 INTERNATIONAL UNIT, QD
     Route: 051
     Dates: start: 20170714, end: 20180306
  9. LANTUS XR [Concomitant]
     Active Substance: INSULIN GLARGINE
     Dosage: 8 INTERNATIONAL UNIT, QD
     Route: 051
     Dates: start: 20180308, end: 20181005
  10. APIDRA [Concomitant]
     Active Substance: INSULIN GLULISINE
     Indication: TYPE 2 DIABETES MELLITUS
     Dosage: 8 INTERNATIONAL UNIT, TID
     Route: 051
     Dates: end: 20160908
  11. ETIZOLAM [Concomitant]
     Active Substance: ETIZOLAM
     Indication: PRODUCT USED FOR UNKNOWN INDICATION
     Dosage: 0.5 MILLIGRAM, QD
     Route: 048
     Dates: start: 20171128
  12. APIDRA [Concomitant]
     Active Substance: INSULIN GLULISINE
     Dosage: 22 UNITS, TID
     Route: 051
     Dates: start: 20170914, end: 20180307
  13. APIDRA [Concomitant]
     Active Substance: INSULIN GLULISINE
     Dosage: 5 INTERNATIONAL UNIT, TID
     Route: 051
     Dates: start: 20181108
  14. CALONAL [Concomitant]
     Active Substance: ACETAMINOPHEN
     Indication: PRODUCT USED FOR UNKNOWN INDICATION
     Dosage: 300 MILLIGRAM, TID
     Route: 048
     Dates: start: 20181106
  15. SENNOSIDE A+B [Concomitant]
     Active Substance: SENNOSIDES A AND B
     Indication: PRODUCT USED FOR UNKNOWN INDICATION
     Dosage: 12 MILLIGRAM, QD
     Route: 048
  16. LANTUS XR [Concomitant]
     Active Substance: INSULIN GLARGINE
     Indication: TYPE 2 DIABETES MELLITUS
     Dosage: 5 INTERNATIONAL UNIT, QD
     Route: 051
     Dates: end: 20170713
  17. LORAMET [Concomitant]
     Active Substance: LORMETAZEPAM
     Indication: PRODUCT USED FOR UNKNOWN INDICATION
     Dosage: 1 MILLIGRAM, QD
     Route: 048

REACTIONS (1)
  - Primary biliary cholangitis [Recovering/Resolving]

NARRATIVE: CASE EVENT DATE: 20180925
